FAERS Safety Report 10020908 (Version 1)
Quarter: 2014Q1

REPORT INFORMATION
  Report Type: Spontaneous
  Country: US (occurrence: US)
  Receive Date: 20140319
  Receipt Date: 20140319
  Transmission Date: 20141002
  Serious: Yes (Hospitalization)
  Sender: FDA-Public Use
  Company Number: US-JNJFOC-20140307532

PATIENT
  Sex: Female

DRUGS (1)
  1. UNSPECIFIED TOPIRAMATE [Suspect]
     Indication: PRODUCT USED FOR UNKNOWN INDICATION
     Route: 048
     Dates: start: 20130329

REACTIONS (6)
  - Respiratory failure [Unknown]
  - Systemic inflammatory response syndrome [Unknown]
  - Pharyngeal oedema [Unknown]
  - Hypophagia [Not Recovered/Not Resolved]
  - Drug prescribing error [Unknown]
  - Drug dose omission [Unknown]
